FAERS Safety Report 16693269 (Version 2)
Quarter: 2019Q3

REPORT INFORMATION
  Report Type: Spontaneous
  Country: JP (occurrence: JP)
  Receive Date: 20190812
  Receipt Date: 20190927
  Transmission Date: 20191004
  Serious: Yes (Other)
  Sender: FDA-Public Use
  Company Number: JP-PFIZER INC-2019295199

PATIENT
  Age: 79 Year
  Sex: Female
  Weight: 48.4 kg

DRUGS (1)
  1. EFFEXOR [Suspect]
     Active Substance: VENLAFAXINE HYDROCHLORIDE
     Indication: DEPRESSION
     Dosage: 37.5 MG, DAILY
     Route: 048
     Dates: start: 20190525, end: 20190528

REACTIONS (20)
  - Blood lactate dehydrogenase increased [Unknown]
  - Dyspnoea [Recovered/Resolved]
  - Peripheral swelling [Recovered/Resolved]
  - Blood calcium increased [Unknown]
  - Lymphocyte percentage decreased [Unknown]
  - Joint swelling [Unknown]
  - C-reactive protein increased [Unknown]
  - Blood alkaline phosphatase increased [Unknown]
  - Blood urea decreased [Unknown]
  - Haematocrit decreased [Unknown]
  - Swelling face [Recovered/Resolved]
  - Neutrophil percentage increased [Unknown]
  - Blood albumin decreased [Unknown]
  - Pyrexia [Recovered/Resolved]
  - Blood creatine phosphokinase increased [Unknown]
  - Swelling [Recovered/Resolved]
  - Feeling hot [Recovered/Resolved]
  - Drug hypersensitivity [Recovered/Resolved]
  - Erythema [Recovered/Resolved]
  - Haemoglobin decreased [Unknown]

NARRATIVE: CASE EVENT DATE: 20190528
